FAERS Safety Report 9355953 (Version 2)
Quarter: 2013Q3

REPORT INFORMATION
  Report Type: Spontaneous
  Country: US (occurrence: US)
  Receive Date: 20130619
  Receipt Date: 20130822
  Transmission Date: 20140515
  Serious: No
  Sender: FDA-Public Use
  Company Number: US-009507513-1306USA007341

PATIENT
  Sex: 0

DRUGS (1)
  1. HEXADROL ELIXER [Suspect]
     Route: 048

REACTIONS (1)
  - Hyperglycaemia [Unknown]
